FAERS Safety Report 4622045-9 (Version None)
Quarter: 2005Q1

REPORT INFORMATION
  Report Type: 
  Country: None (occurrence: None)
  Receive Date: 20050328
  Receipt Date: 20050316
  Transmission Date: 20050727
  Serious: Yes (Life-Threatening)
  Sender: FDA-Public Use
  Company Number: 213151

PATIENT
  Age: 58 Year
  Sex: Male
  Weight: 102 kg

DRUGS (12)
  1. RITUXAN (RITUXIMAB0 CONC FOR SOLUTION FOR INFUSION [Suspect]
     Indication: CENTRAL NERVOUS SYSTEM LYMPHOMA
     Dosage: 25 MG, INTRATHECAL
     Route: 037
     Dates: start: 20041218, end: 20041218
  2. RITUXAN (RITUXIMAB0 CONC FOR SOLUTION FOR INFUSION [Suspect]
     Indication: CENTRAL NERVOUS SYSTEM LYMPHOMA
     Dosage: 25 MG, INTRATHECAL
     Route: 037
     Dates: start: 20041229, end: 20041229
  3. RITUXAN (RITUXIMAB0 CONC FOR SOLUTION FOR INFUSION [Suspect]
     Indication: CENTRAL NERVOUS SYSTEM LYMPHOMA
     Dosage: 25 MG, INTRATHECAL
     Route: 037
     Dates: start: 20050102, end: 20050102
  4. RITUXAN (RITUXIMAB0 CONC FOR SOLUTION FOR INFUSION [Suspect]
     Indication: CENTRAL NERVOUS SYSTEM LYMPHOMA
     Dosage: 25 MG, INTRATHECAL
     Route: 037
     Dates: start: 20050104, end: 20050104
  5. RITUXAN (RITUXIMAB0 CONC FOR SOLUTION FOR INFUSION [Suspect]
     Indication: CENTRAL NERVOUS SYSTEM LYMPHOMA
     Dosage: 25 MG, INTRATHECAL
     Route: 037
     Dates: start: 20050110, end: 20050110
  6. CEFTRIAXONE [Concomitant]
  7. VANCOMYCIN HYDROCHLORIDE [Concomitant]
  8. INSULIN SS (INSULIN) [Concomitant]
  9. MORPHINE SULFATE [Concomitant]
  10. DEXAMETHASONE [Concomitant]
  11. COLACE (DOCUSATE SODIUM) [Concomitant]
  12. SENNA (SENNA) [Concomitant]

REACTIONS (7)
  - ACUTE RESPIRATORY FAILURE [None]
  - BUNDLE BRANCH BLOCK RIGHT [None]
  - ECHOCARDIOGRAM ABNORMAL [None]
  - HAEMODYNAMIC INSTABILITY [None]
  - MENINGITIS STAPHYLOCOCCAL [None]
  - PULMONARY EMBOLISM [None]
  - VENTRICULAR HYPERTROPHY [None]
